FAERS Safety Report 8824488 (Version 2)
Quarter: 2012Q4

REPORT INFORMATION
  Report Type: 
  Country: US (occurrence: US)
  Receive Date: 20121004
  Receipt Date: 20121026
  Transmission Date: 20130627
  Serious: No
  Sender: FDA-Public Use
  Company Number: US-PFIZER INC-2012243180

PATIENT
  Sex: Female

DRUGS (1)
  1. NORVASC [Suspect]
     Dosage: UNK

REACTIONS (2)
  - Hypertension [Unknown]
  - Nasopharyngitis [Unknown]
